FAERS Safety Report 22366953 (Version 1)
Quarter: 2023Q2

REPORT INFORMATION
  Report Type: Spontaneous
  Country: FI (occurrence: FI)
  Receive Date: 20230525
  Receipt Date: 20230525
  Transmission Date: 20230722
  Serious: Yes (Other)
  Sender: FDA-Public Use
  Company Number: FI-MYLANLABS-2023M1047934

PATIENT
  Age: 21 Year
  Sex: Male

DRUGS (6)
  1. PREGABALIN [Suspect]
     Active Substance: PREGABALIN
     Indication: Neuralgia
     Dosage: UNK
     Route: 065
  2. DULOXETINE [Suspect]
     Active Substance: DULOXETINE
     Indication: Neuralgia
     Dosage: UNK
     Route: 065
  3. INSULIN ASPART [Suspect]
     Active Substance: INSULIN ASPART
     Indication: Type 1 diabetes mellitus
     Dosage: UNK
     Route: 065
  4. INSULIN GLARGINE [Suspect]
     Active Substance: INSULIN GLARGINE
     Indication: Type 1 diabetes mellitus
     Dosage: INJECTION
     Route: 065
  5. AMITRIPTYLINE [Concomitant]
     Active Substance: AMITRIPTYLINE
     Dosage: 50 MILLIGRAM, QD (EVENING)
     Route: 065
  6. TRAMADOL [Concomitant]
     Active Substance: TRAMADOL
     Indication: Panic attack
     Dosage: 100 MILLIGRAM, BID (TWICE DAILY)
     Route: 065

REACTIONS (10)
  - Erectile dysfunction [Recovered/Resolved]
  - Diabetic neuropathy [Recovered/Resolved]
  - Neuralgia [Recovered/Resolved]
  - Burning sensation [Recovered/Resolved]
  - Diabetic retinopathy [Recovered/Resolved]
  - Diabetic gastroparesis [Recovered/Resolved]
  - Pain in extremity [Recovered/Resolved]
  - Autonomic neuropathy [Recovered/Resolved]
  - Vomiting [Recovered/Resolved]
  - Drug ineffective [Unknown]
